FAERS Safety Report 8075583-3 (Version None)
Quarter: 2012Q1

REPORT INFORMATION
  Report Type: 
  Country: None (occurrence: None)
  Receive Date: 20120127
  Receipt Date: 20120116
  Transmission Date: 20120608
  Serious: Yes (Hospitalization)
  Sender: FDA-Public Use
  Company Number: ES-SANOFI-AVENTIS-2012SA002836

PATIENT
  Age: 53 Year
  Sex: Male

DRUGS (2)
  1. FUROSEMIDE [Suspect]
     Route: 048
     Dates: start: 20100814, end: 20100819
  2. AMILORIDE HCL AND HYDROCHLOROTHIAZIDE [Suspect]
     Route: 048
     Dates: start: 20100814, end: 20100819

REACTIONS (1)
  - RENAL FAILURE ACUTE [None]
